FAERS Safety Report 23347322 (Version 1)
Quarter: 2023Q4

REPORT INFORMATION
  Report Type: Spontaneous
  Country: MY (occurrence: MY)
  Receive Date: 20231228
  Receipt Date: 20231228
  Transmission Date: 20240109
  Serious: Yes (Other)
  Sender: FDA-Public Use
  Company Number: MY-MYLANLABS-2023M1136962

PATIENT
  Age: 31 Year
  Sex: Male

DRUGS (1)
  1. ARIXTRA [Suspect]
     Active Substance: FONDAPARINUX SODIUM
     Indication: Angina unstable
     Dosage: 2.5 MILLIGRAM, QD
     Route: 058

REACTIONS (1)
  - Eye swelling [Recovering/Resolving]
